FAERS Safety Report 8933305 (Version 2)
Quarter: 2012Q4

REPORT INFORMATION
  Report Type: 
  Country: JP (occurrence: JP)
  Receive Date: 20121128
  Receipt Date: 20121204
  Transmission Date: 20130627
  Serious: Yes (Other)
  Sender: FDA-Public Use
  Company Number: JP-PFIZER INC-2012280022

PATIENT
  Age: 71 Year
  Sex: Male

DRUGS (3)
  1. LYRICA [Suspect]
     Indication: NEUROPATHIC PAIN
     Dosage: 25 mg, 1x/day
     Route: 048
     Dates: start: 20120911
  2. LYRICA [Interacting]
     Dosage: 75 mg, 1x/day
     Route: 048
     Dates: start: 20120830, end: 20120910
  3. TRAMCET [Interacting]
     Indication: NEUROPATHIC PAIN
     Dosage: 1 DF, 4x/day
     Route: 048
     Dates: start: 201208

REACTIONS (3)
  - Drug interaction [Unknown]
  - Disturbance in attention [Recovered/Resolved]
  - Road traffic accident [Recovered/Resolved]
